FAERS Safety Report 4974601-6 (Version None)
Quarter: 2006Q2

REPORT INFORMATION
  Report Type: 
  Country: None (occurrence: None)
  Receive Date: 20060410
  Receipt Date: 20060328
  Transmission Date: 20061013
  Serious: Yes (Death)
  Sender: FDA-Public Use
  Company Number: 223540

PATIENT
  Age: 33 Year
  Sex: Female

DRUGS (1)
  1. MABTHERA (RITUXIMAB)CONC FOR SOLUTION FOR INFUSION [Suspect]
     Indication: ANGIOCENTRIC LYMPHOMA
     Dosage: 375 MG/M2, 1/WEEK

REACTIONS (1)
  - HAEMOPTYSIS [None]
